FAERS Safety Report 9339204 (Version 1)
Quarter: 2013Q2

REPORT INFORMATION
  Report Type: Spontaneous
  Country: US (occurrence: None)
  Receive Date: 20130605
  Receipt Date: 20130605
  Transmission Date: 20140414
  Serious: Yes (Hospitalization)
  Sender: FDA-Public Use
  Company Number: 13AE010

PATIENT
  Age: 32 Year
  Sex: Female

DRUGS (1)
  1. EQUATE IBUPROFEN [Suspect]
     Indication: PAIN
     Dosage: 2 CAPLETS BY MOUTH
     Route: 048
     Dates: start: 20130421

REACTIONS (1)
  - Urticaria [None]
